FAERS Safety Report 19945182 (Version 2)
Quarter: 2021Q4

REPORT INFORMATION
  Report Type: Report from Study
  Country: None (occurrence: CO)
  Receive Date: 20211011
  Receipt Date: 20211018
  Transmission Date: 20220303
  Serious: Yes (Other)
  Sender: FDA-Public Use
  Company Number: CO-ABBVIE-21K-036-4104852-00

PATIENT
  Age: 6 Year
  Sex: Female

DRUGS (5)
  1. HUMIRA [Suspect]
     Active Substance: ADALIMUMAB
     Indication: Juvenile idiopathic arthritis
     Route: 058
     Dates: start: 20181221, end: 20210808
  2. HUMIRA [Suspect]
     Active Substance: ADALIMUMAB
     Route: 058
     Dates: start: 2021
  3. HUMIRA [Suspect]
     Active Substance: ADALIMUMAB
     Indication: Juvenile idiopathic arthritis
     Dosage: CITRATE FREE
     Route: 058
     Dates: start: 2021, end: 2021
  4. PREDNISOLONE [Concomitant]
     Active Substance: PREDNISOLONE
     Indication: Juvenile idiopathic arthritis
     Route: 048
     Dates: start: 202107
  5. FOLIC ACID [Concomitant]
     Active Substance: FOLIC ACID
     Indication: Juvenile idiopathic arthritis
     Route: 048

REACTIONS (13)
  - Blindness [Not Recovered/Not Resolved]
  - Eye inflammation [Not Recovered/Not Resolved]
  - Mouth ulceration [Recovered/Resolved]
  - Eye inflammation [Recovering/Resolving]
  - Arthritis [Recovered/Resolved]
  - Nightmare [Recovered/Resolved]
  - Visual impairment [Not Recovered/Not Resolved]
  - Pyrexia [Recovered/Resolved]
  - Vomiting [Recovered/Resolved]
  - Dyspnoea [Recovered/Resolved]
  - Arthritis [Recovered/Resolved]
  - Myalgia [Recovering/Resolving]
  - Eye swelling [Unknown]

NARRATIVE: CASE EVENT DATE: 20210701
